FAERS Safety Report 10761213 (Version 1)
Quarter: 2015Q1

REPORT INFORMATION
  Report Type: Spontaneous
  Country: US (occurrence: None)
  Receive Date: 20150203
  Receipt Date: 20150203
  Transmission Date: 20150721
  Serious: Yes (Other)
  Sender: FDA-Public Use
  Company Number: None

PATIENT
  Age: 70 Year
  Sex: Female
  Weight: 67.13 kg

DRUGS (2)
  1. HYDRO CODON ACETAMINOPHEN 5-325 MG MALLINKRODT [Suspect]
     Active Substance: ACETAMINOPHEN\HYDROCODONE
     Indication: PROCEDURAL PAIN
     Dosage: 1 TABLET
     Route: 048
     Dates: start: 20150124, end: 20150129
  2. HYDRO CODON ACETAMINOPHEN 5-325 MG MALLINKRODT [Suspect]
     Active Substance: ACETAMINOPHEN\HYDROCODONE
     Indication: KNEE ARTHROPLASTY
     Dosage: 1 TABLET
     Route: 048
     Dates: start: 20150124, end: 20150129

REACTIONS (5)
  - Peripheral swelling [None]
  - Erythema [None]
  - Contusion [None]
  - Post procedural complication [None]
  - Pain in extremity [None]

NARRATIVE: CASE EVENT DATE: 20150202
